FAERS Safety Report 23242200 (Version 1)
Quarter: 2023Q4

REPORT INFORMATION
  Report Type: Spontaneous
  Country: FR (occurrence: FR)
  Receive Date: 20231129
  Receipt Date: 20231129
  Transmission Date: 20240110
  Serious: Yes (Other)
  Sender: FDA-Public Use
  Company Number: FR-TEVA-2023-FR-2939419

PATIENT
  Age: 90 Year
  Sex: Female

DRUGS (2)
  1. ATENOLOL [Suspect]
     Active Substance: ATENOLOL
     Indication: Hypertension
     Dosage: 50 MILLIGRAM DAILY; HALF-TABLET TO TAKE IN THE MORNING AND IN THE EVENING
     Route: 065
  2. FLECAINIDE ACETATE [Suspect]
     Active Substance: FLECAINIDE ACETATE
     Indication: Extrasystoles
     Dosage: 1 DOSAGE FORMS, (QD) DAILY
     Route: 065
     Dates: start: 2021

REACTIONS (6)
  - Face oedema [Not Recovered/Not Resolved]
  - Brain fog [Not Recovered/Not Resolved]
  - Intentional product misuse [Unknown]
  - Dry eye [Not Recovered/Not Resolved]
  - Drug intolerance [Unknown]
  - Drug effect less than expected [Unknown]
